FAERS Safety Report 16179643 (Version 3)
Quarter: 2019Q2

REPORT INFORMATION
  Report Type: Spontaneous
  Country: US (occurrence: US)
  Receive Date: 20190410
  Receipt Date: 20190527
  Transmission Date: 20190711
  Serious: Yes (Hospitalization)
  Sender: FDA-Public Use
  Company Number: US-PFIZER INC-2019142445

PATIENT
  Age: 90 Year
  Sex: Female
  Weight: 54.42 kg

DRUGS (2)
  1. LATANOPROST. [Suspect]
     Active Substance: LATANOPROST
     Indication: INTRAOCULAR PRESSURE INCREASED
     Dosage: 2 GTT, 1X/DAY (1 DROP IN EACH EYE ONCE A DAY AT NIGHT)
     Route: 047
     Dates: start: 20190307, end: 20190311
  2. LATANOPROST. [Suspect]
     Active Substance: LATANOPROST
     Indication: VISUAL IMPAIRMENT
     Dosage: UNK

REACTIONS (6)
  - Visual impairment [Recovering/Resolving]
  - Drug hypersensitivity [Unknown]
  - Eye movement disorder [Recovering/Resolving]
  - Ocular discomfort [Recovering/Resolving]
  - Photopsia [Recovering/Resolving]
  - Eye pain [Recovering/Resolving]

NARRATIVE: CASE EVENT DATE: 201903
